FAERS Safety Report 13020272 (Version 1)
Quarter: 2016Q4

REPORT INFORMATION
  Report Type: Spontaneous
  Country: CA (occurrence: CA)
  Receive Date: 20161212
  Receipt Date: 20161212
  Transmission Date: 20170207
  Serious: No
  Sender: FDA-Public Use
  Company Number: CA-LPDUSPRD-20160125

PATIENT
  Age: 41 Year
  Sex: Female

DRUGS (4)
  1. VENOFER [Suspect]
     Active Substance: IRON SUCROSE
     Dosage: 1 DOSE, NOT SPEC. /WEEK
     Route: 042
     Dates: start: 201601
  2. SYNTHROID [Concomitant]
     Active Substance: LEVOTHYROXINE SODIUM
     Dosage: DOSE NOT PROVIDED
     Route: 065
  3. IRON, NOT SPECIFIED [Suspect]
     Active Substance: IRON
     Dosage: DOSE NOT PROVIDED OVER 2 HOURS
     Route: 042
     Dates: start: 2016
  4. YASMIN [Concomitant]
     Active Substance: DROSPIRENONE\ETHINYL ESTRADIOL
     Dosage: DOSE NOT PROVIDED
     Route: 066

REACTIONS (6)
  - Diarrhoea [Recovered/Resolved]
  - Off label use [Unknown]
  - Abdominal pain [Recovered/Resolved]
  - Nausea [Recovered/Resolved]
  - Dizziness [Recovered/Resolved]
  - Hypersomnia [Recovered/Resolved]

NARRATIVE: CASE EVENT DATE: 2016
